FAERS Safety Report 11874803 (Version 1)
Quarter: 2015Q4

REPORT INFORMATION
  Report Type: Report from Study
  Country: US (occurrence: US)
  Receive Date: 20151229
  Receipt Date: 20151229
  Transmission Date: 20160305
  Serious: No
  Sender: FDA-Public Use
  Company Number: PHEH2014US002269

PATIENT
  Sex: Male

DRUGS (1)
  1. TOBI [Suspect]
     Active Substance: TOBRAMYCIN
     Indication: CYSTIC FIBROSIS
     Dosage: 300 MG/5ML, BID
     Route: 055

REACTIONS (7)
  - Decreased appetite [Unknown]
  - Throat irritation [Recovered/Resolved]
  - Sensation of foreign body [Unknown]
  - Nausea [Unknown]
  - Weight decreased [Unknown]
  - Dysgeusia [Recovered/Resolved]
  - Hearing impaired [Unknown]
